FAERS Safety Report 7625888-2 (Version None)
Quarter: 2011Q3

REPORT INFORMATION
  Report Type: 
  Country: None (occurrence: None)
  Receive Date: 20110721
  Receipt Date: 20110712
  Transmission Date: 20111222
  Serious: Yes (Other)
  Sender: FDA-Public Use
  Company Number: BR-ABBOTT-11P-020-0838467-00

PATIENT
  Sex: Female
  Weight: 66 kg

DRUGS (6)
  1. MELOXICAM 10MG/ PREDNISONE 5MG/ FAMOTIDINE 20MG [Concomitant]
     Indication: PAIN
     Route: 048
     Dates: start: 19960101
  2. LEFLUNOMIDE [Concomitant]
     Indication: PAIN
     Route: 048
     Dates: start: 19960101
  3. HUMIRA [Suspect]
     Route: 058
  4. CAPTOPRIL [Concomitant]
     Indication: HYPERTENSION
     Route: 048
     Dates: start: 20070101
  5. VALSARTAN [Concomitant]
     Indication: HYPERTENSION
     Route: 048
     Dates: start: 20090101
  6. HUMIRA [Suspect]
     Indication: RHEUMATOID ARTHRITIS
     Dosage: INDUCTION DOSE
     Route: 058
     Dates: start: 20090101

REACTIONS (1)
  - HYPERTENSIVE CRISIS [None]
